FAERS Safety Report 8481597 (Version 3)
Quarter: 2013Q3

REPORT INFORMATION
  Report Type: Report from Study
  Country: MX (occurrence: MX)
  Receive Date: 20120329
  Receipt Date: 20130712
  Transmission Date: 20140515
  Serious: Yes (Hospitalization)
  Sender: FDA-Public Use
  Company Number: PHHY2012MX026006

PATIENT
  Age: 70 Year
  Sex: Male

DRUGS (6)
  1. ONBREZ [Suspect]
     Indication: ASTHMA
     Dosage: 1 DF, QD
     Dates: start: 20120125, end: 20120303
  2. ONBREZ [Suspect]
     Indication: OFF LABEL USE
  3. SINTROM [Concomitant]
     Dosage: 1 DF, QD
     Dates: start: 20120303
  4. SIMBASTATINA [Concomitant]
     Indication: BLOOD CHOLESTEROL
     Dosage: 1 DF, QD
     Dates: start: 20120303
  5. ASPITAC [Concomitant]
     Dosage: 1 DF, QD
     Dates: start: 20120303
  6. SPIRONOLACTONE [Concomitant]
     Dosage: 1 DF, QD

REACTIONS (1)
  - Myocardial infarction [Recovered/Resolved]
